FAERS Safety Report 7636498-5 (Version None)
Quarter: 2011Q3

REPORT INFORMATION
  Report Type: 
  Country: None (occurrence: None)
  Receive Date: 20110726
  Receipt Date: 20110714
  Transmission Date: 20111222
  Serious: Yes (Hospitalization, Other)
  Sender: FDA-Public Use
  Company Number: US-BAYER-201012523NA

PATIENT
  Age: 40 Year
  Sex: Female
  Weight: 57 kg

DRUGS (6)
  1. YAZ [Suspect]
     Indication: MENORRHAGIA
     Dosage: UNK
     Dates: start: 20071106, end: 20080415
  2. YAZ [Suspect]
     Indication: CONTRACEPTION
  3. AZITHROMYCIN [Concomitant]
  4. YAZ [Suspect]
     Indication: PREMENSTRUAL SYNDROME
  5. YASMIN [Suspect]
     Indication: PRODUCT USED FOR UNKNOWN INDICATION
     Dosage: 1 DF (DAILY DOSE), QD, ORAL
     Route: 048
     Dates: start: 20071101, end: 20080401
  6. PROMETHAZINE [Concomitant]

REACTIONS (21)
  - HYPOAESTHESIA [None]
  - CONFUSIONAL STATE [None]
  - PANIC ATTACK [None]
  - DEEP VEIN THROMBOSIS [None]
  - HEADACHE [None]
  - EMOTIONAL DISTRESS [None]
  - THINKING ABNORMAL [None]
  - PAIN [None]
  - APHASIA [None]
  - HEMIPARESIS [None]
  - ANXIETY [None]
  - CEREBROVASCULAR ACCIDENT [None]
  - PULMONARY EMBOLISM [None]
  - MEMORY IMPAIRMENT [None]
  - MOTOR DYSFUNCTION [None]
  - SPEECH DISORDER [None]
  - COGNITIVE DISORDER [None]
  - MYOCARDIAL INFARCTION [None]
  - CEREBRAL ARTERY THROMBOSIS [None]
  - FEAR [None]
  - DEPRESSION [None]
